FAERS Safety Report 10676038 (Version 4)
Quarter: 2015Q1

REPORT INFORMATION
  Report Type: Report from Study
  Country: FR (occurrence: FR)
  Receive Date: 20141225
  Receipt Date: 20150312
  Transmission Date: 20150720
  Serious: Yes (Death, Hospitalization, Disabling, Other)
  Sender: FDA-Public Use
  Company Number: PHHY2014FR167138

PATIENT
  Age: 51 Year
  Sex: Female

DRUGS (14)
  1. PARACETAMOL [Concomitant]
     Active Substance: ACETAMINOPHEN
     Indication: HEADACHE
     Dosage: 400 MG, QD
     Route: 065
     Dates: start: 20141226
  2. TRAMADOL [Concomitant]
     Active Substance: TRAMADOL
     Indication: HEADACHE
     Dosage: 200 MG, QD
     Route: 065
     Dates: start: 20141216, end: 20141222
  3. NOVORAPID [Concomitant]
     Active Substance: INSULIN ASPART
     Indication: PRODUCT USED FOR UNKNOWN INDICATION
     Route: 065
     Dates: start: 20150103
  4. MIDAZOLAM [Concomitant]
     Active Substance: MIDAZOLAM\MIDAZOLAM HYDROCHLORIDE
     Indication: DISEASE PROGRESSION
     Route: 065
     Dates: start: 20141222
  5. OXINORM//OXYCODONE HYDROCHLORIDE [Concomitant]
     Indication: PRODUCT USED FOR UNKNOWN INDICATION
     Route: 065
     Dates: start: 20150112
  6. ONDANSETRON [Concomitant]
     Active Substance: ONDANSETRON
     Indication: DISEASE PROGRESSION
     Dosage: 8 MG, UNK
     Route: 065
     Dates: start: 20141216
  7. METHYLPREDNISOLONE. [Concomitant]
     Active Substance: METHYLPREDNISOLONE
     Indication: DISEASE PROGRESSION
     Dosage: 240 MG, UNK
     Route: 065
     Dates: start: 20141216
  8. LEVOFLOXACIN. [Concomitant]
     Active Substance: LEVOFLOXACIN
     Indication: PRODUCT USED FOR UNKNOWN INDICATION
     Dosage: 500 MG, UNK
     Route: 065
     Dates: start: 20150108
  9. LEVETIRACETAM. [Concomitant]
     Active Substance: LEVETIRACETAM
     Indication: EPILEPSY
     Dosage: 1000 MG, QD
     Route: 065
     Dates: start: 20141222, end: 20150106
  10. MANNITOL. [Concomitant]
     Active Substance: MANNITOL
     Indication: DISEASE PROGRESSION
     Dosage: 10 %, (16 PERCENT 500 ML)
     Route: 065
     Dates: start: 20141216
  11. PLITICAN [Concomitant]
     Active Substance: ALIZAPRIDE HYDROCHLORIDE
     Indication: DISEASE PROGRESSION
     Route: 065
     Dates: start: 20141224
  12. LDK378 [Suspect]
     Active Substance: CERITINIB
     Indication: ADENOCARCINOMA
     Dosage: 750 MG, QD
     Route: 048
     Dates: start: 20141030, end: 20141119
  13. LDK378 [Suspect]
     Active Substance: CERITINIB
     Dosage: 600 MG, QD
     Route: 048
     Dates: start: 20141223, end: 20150106
  14. LANTUS [Concomitant]
     Active Substance: INSULIN GLARGINE
     Indication: PRODUCT USED FOR UNKNOWN INDICATION
     Dosage: 14 U, UNK
     Route: 065
     Dates: start: 20150103

REACTIONS (10)
  - Adenocarcinoma [Fatal]
  - Malaise [Recovered/Resolved]
  - Thrombocytopenia [Not Recovered/Not Resolved]
  - Metastases to central nervous system [Unknown]
  - White blood cell count increased [Unknown]
  - Hypotension [Recovered/Resolved]
  - Vomiting [Recovered/Resolved]
  - Intracranial pressure increased [Unknown]
  - Malignant neoplasm progression [Fatal]
  - Nausea [Recovered/Resolved]

NARRATIVE: CASE EVENT DATE: 20141030
